FAERS Safety Report 6363558-1 (Version None)
Quarter: 2009Q3

REPORT INFORMATION
  Report Type: 
  Country: None (occurrence: None)
  Receive Date: 20090919
  Receipt Date: 20090701
  Transmission Date: 20100115
  Serious: No
  Sender: FDA-Public Use
  Company Number: US-ABBOTT-09P-163-0583490-00

PATIENT
  Sex: Female
  Weight: 68.1 kg

DRUGS (11)
  1. HUMIRA [Suspect]
     Indication: PSORIASIS
     Route: 058
     Dates: start: 20090617
  2. COLAZAL [Concomitant]
     Indication: COLITIS
  3. PROTONIX [Concomitant]
     Indication: DRUG USE FOR UNKNOWN INDICATION
  4. SYNTHROID [Concomitant]
     Indication: DRUG USE FOR UNKNOWN INDICATION
  5. ASPIRIN [Concomitant]
     Indication: DRUG USE FOR UNKNOWN INDICATION
  6. CENTRIUM +D [Concomitant]
     Indication: DRUG USE FOR UNKNOWN INDICATION
  7. NASONEX [Concomitant]
     Indication: DRUG USE FOR UNKNOWN INDICATION
  8. REISTASIS [Concomitant]
     Indication: DRUG USE FOR UNKNOWN INDICATION
  9. ALPHAGAN [Concomitant]
     Indication: DRUG USE FOR UNKNOWN INDICATION
  10. TREVILITE [Concomitant]
     Indication: DRUG USE FOR UNKNOWN INDICATION
  11. FOSAMAX [Concomitant]
     Indication: DRUG USE FOR UNKNOWN INDICATION

REACTIONS (1)
  - INJECTION SITE HAEMORRHAGE [None]
